FAERS Safety Report 10916055 (Version 2)
Quarter: 2015Q2

REPORT INFORMATION
  Report Type: Spontaneous
  Country: BE (occurrence: BE)
  Receive Date: 20150316
  Receipt Date: 20150415
  Transmission Date: 20150821
  Serious: Yes (Hospitalization)
  Sender: FDA-Public Use
  Company Number: BE-009507513-1502BEL011846

PATIENT
  Age: 25 Year
  Sex: Female

DRUGS (2)
  1. IMPLANON [Suspect]
     Active Substance: ETONOGESTREL
     Dosage: UNK
     Route: 059
  2. IMPLANON [Suspect]
     Active Substance: ETONOGESTREL
     Indication: DRUG ADMINISTRATION ERROR
     Dosage: UNK
     Route: 059
     Dates: start: 20141208

REACTIONS (1)
  - Device difficult to use [Recovered/Resolved]

NARRATIVE: CASE EVENT DATE: 20141208
